FAERS Safety Report 16874154 (Version 2)
Quarter: 2019Q4

REPORT INFORMATION
  Report Type: Spontaneous
  Country: HU (occurrence: HU)
  Receive Date: 20191001
  Receipt Date: 20191004
  Transmission Date: 20200122
  Serious: Yes (Death, Hospitalization, Other)
  Sender: FDA-Public Use
  Company Number: HU-ABBVIE-19K-076-2810815-00

PATIENT
  Age: 51 Year
  Sex: Male

DRUGS (2)
  1. VENCLYXTO [Suspect]
     Active Substance: VENETOCLAX
     Indication: HISTIOCYTOSIS
  2. VENCLYXTO [Suspect]
     Active Substance: VENETOCLAX
     Indication: BLASTIC PLASMACYTOID DENDRITIC CELL NEOPLASIA
     Route: 048
     Dates: start: 20190528, end: 20190916

REACTIONS (11)
  - Hypoalbuminaemia [Unknown]
  - Haemophagocytic lymphohistiocytosis [Fatal]
  - Anaemia [Not Recovered/Not Resolved]
  - Off label use [Unknown]
  - Multiple organ dysfunction syndrome [Fatal]
  - Hypocalcaemia [Unknown]
  - Respiratory failure [Fatal]
  - Thrombocytopenia [Unknown]
  - Histiocytic sarcoma [Fatal]
  - Generalised oedema [Unknown]
  - Thrombocytopenia [Recovered/Resolved]

NARRATIVE: CASE EVENT DATE: 20190528
